FAERS Safety Report 6301472-8 (Version None)
Quarter: 2009Q3

REPORT INFORMATION
  Report Type: 
  Country: None (occurrence: None)
  Receive Date: 20090807
  Receipt Date: 20090731
  Transmission Date: 20100115
  Serious: Yes (Hospitalization, Other)
  Sender: FDA-Public Use
  Company Number: A0794985A

PATIENT
  Age: 26 Year
  Sex: Female
  Weight: 59.5 kg

DRUGS (10)
  1. FLOLAN [Suspect]
     Dosage: 9MGKM UNKNOWN
     Route: 042
     Dates: start: 20090529, end: 20090605
  2. EPOPROSTENOL SODIUM [Suspect]
     Dosage: 9MGKM UNKNOWN
     Route: 042
     Dates: start: 20090514, end: 20090529
  3. REMODULIN [Concomitant]
     Route: 042
     Dates: start: 20090605
  4. REVATIO [Concomitant]
     Route: 048
     Dates: start: 20090605
  5. DIGOXIN [Concomitant]
     Route: 048
  6. TRACLEER [Concomitant]
     Route: 048
  7. WARFARIN [Concomitant]
     Route: 048
  8. OXYGEN [Concomitant]
     Route: 055
  9. PEPCID [Concomitant]
     Indication: GASTROINTESTINAL DISORDER
     Route: 048
  10. TYLENOL (CAPLET) [Concomitant]
     Indication: PAIN
     Route: 048

REACTIONS (4)
  - BLISTER [None]
  - HYPERSENSITIVITY [None]
  - RASH [None]
  - SWELLING [None]
